FAERS Safety Report 4589911-4 (Version None)
Quarter: 2005Q1

REPORT INFORMATION
  Report Type: 
  Country: None (occurrence: None)
  Receive Date: 20050125
  Receipt Date: 20041115
  Transmission Date: 20050727
  Serious: No
  Sender: FDA-Public Use
  Company Number: USA040875229

PATIENT
  Age: 84 Year
  Sex: Female

DRUGS (6)
  1. FORTEO [Suspect]
     Indication: OSTEOPOROSIS
     Dates: start: 20040616
  2. VITAMIN C [Concomitant]
  3. MULTIVITAMIN [Concomitant]
  4. FIBERCON (POLYCARBOPHIL CALCIUM) [Concomitant]
  5. PLAVIX [Concomitant]
  6. OSCAL (CALCIUM CARBONATE) [Concomitant]

REACTIONS (3)
  - DIZZINESS [None]
  - FEELING ABNORMAL [None]
  - VERTIGO [None]
